FAERS Safety Report 25265580 (Version 1)
Quarter: 2025Q2

REPORT INFORMATION
  Report Type: Spontaneous
  Country: BG (occurrence: BG)
  Receive Date: 20250502
  Receipt Date: 20250502
  Transmission Date: 20250717
  Serious: Yes (Other)
  Sender: PRINSTON PHARMACEUTICAL
  Company Number: BG-PRINSTON PHARMACEUTICAL INC.-2025PRN00153

PATIENT
  Age: 85 Year

DRUGS (10)
  1. LISINOPRIL [Suspect]
     Active Substance: LISINOPRIL
     Dosage: 10 MG, 1X/DAY IN THE MORNING
     Dates: start: 2020, end: 2023
  2. BISOPROLOL FUMARATE [Suspect]
     Active Substance: BISOPROLOL FUMARATE
     Dosage: 2.5 MG, 1X/DAY IN THE MORNING
     Dates: start: 2015
  3. COLCHICINE [Concomitant]
     Active Substance: COLCHICINE
     Dosage: 0.5 MG, 2X/DAY
  4. TORSEMIDE [Concomitant]
     Active Substance: TORSEMIDE
     Dosage: 10 MG, 1X/DAY IN THE MORNING
     Dates: start: 2014
  5. CLOPIDOGREL [Concomitant]
     Active Substance: CLOPIDOGREL BISULFATE
     Dosage: 75 MG, 1X/DAY (IN THE MORNING)
     Dates: start: 2019
  6. SOLIFENACIN\TAMSULOSIN [Concomitant]
     Active Substance: SOLIFENACIN\TAMSULOSIN
     Dosage: 4 MG, 1X/DAY
     Dates: start: 2021
  7. ATORVASTATIN [Concomitant]
     Active Substance: ATORVASTATIN
     Dosage: 10 MG, 1X/DAY
     Dates: start: 2013
  8. ISOSORBIDE MONONITRATE [Concomitant]
     Active Substance: ISOSORBIDE MONONITRATE
     Dosage: 20 MG, 1X/DAY IN THE EVENING
     Dates: start: 2011
  9. INSULIN HUMAN [Concomitant]
     Active Substance: INSULIN HUMAN
  10. AMLODIPINE [Concomitant]
     Active Substance: AMLODIPINE BESYLATE

REACTIONS (1)
  - Basal cell carcinoma [Unknown]
